FAERS Safety Report 4916577-3 (Version None)
Quarter: 2006Q1

REPORT INFORMATION
  Report Type: 
  Country: None (occurrence: None)
  Receive Date: 20060220
  Receipt Date: 20060131
  Transmission Date: 20060701
  Serious: Yes (Other)
  Sender: FDA-Public Use
  Company Number: US-GLAXOSMITHKLINE-A0591736A

PATIENT
  Age: 39 Year
  Sex: Male

DRUGS (2)
  1. LAMICTAL [Suspect]
     Indication: BIPOLAR DISORDER
     Dosage: 200MG IN THE MORNING
     Route: 048
     Dates: start: 20051019
  2. PREDNISONE [Concomitant]
     Route: 047

REACTIONS (2)
  - ANXIETY [None]
  - DIPLOPIA [None]
